FAERS Safety Report 8011480-7 (Version None)
Quarter: 2011Q4

REPORT INFORMATION
  Report Type: 
  Country: None (occurrence: None)
  Receive Date: 20111228
  Receipt Date: 20111220
  Transmission Date: 20120403
  Serious: Yes (Other)
  Sender: FDA-Public Use
  Company Number: US-PFIZER INC-2011147840

PATIENT
  Sex: Male

DRUGS (5)
  1. TRAMADOL [Concomitant]
     Indication: DEPRESSION
  2. TRAMADOL [Concomitant]
     Indication: PAIN
     Dosage: UNK
     Dates: start: 20060101
  3. CHANTIX [Suspect]
     Indication: SMOKING CESSATION THERAPY
     Dosage: STARTING MONTH PACK ^0.5 MG X 11 AND 1 MG X 14^
     Dates: start: 20070501, end: 20071201
  4. HYDROCODONE [Concomitant]
     Indication: PAIN
     Dosage: UNK
     Dates: start: 20000101
  5. HYDROCODONE [Concomitant]
     Indication: DEPRESSION

REACTIONS (6)
  - SUICIDE ATTEMPT [None]
  - AGGRESSION [None]
  - INTENTIONAL OVERDOSE [None]
  - ABNORMAL BEHAVIOUR [None]
  - DEPRESSION [None]
  - MOOD ALTERED [None]
